FAERS Safety Report 5325917-5 (Version None)
Quarter: 2007Q2

REPORT INFORMATION
  Report Type: 
  Country: None (occurrence: None)
  Receive Date: 20070516
  Receipt Date: 20070510
  Transmission Date: 20071010
  Serious: Yes (Other)
  Sender: FDA-Public Use
  Company Number: PHBS2007JP00689

PATIENT
  Age: 68 Year
  Sex: Male
  Weight: 70 kg

DRUGS (4)
  1. PREDONINE [Concomitant]
     Route: 065
  2. SUCRALFATE [Concomitant]
     Route: 065
  3. ZOMETA [Suspect]
     Indication: HYPERCALCAEMIA
     Dosage: 4 MG, UNK
     Route: 042
     Dates: start: 20050812, end: 20060303
  4. BISPHONAL [Suspect]
     Indication: HYPERCALCAEMIA
     Dosage: 10 MG, UNK
     Dates: start: 20050622, end: 20050715

REACTIONS (7)
  - HAEMORRHAGE [None]
  - LOCAL SWELLING [None]
  - OSTEONECROSIS [None]
  - PAIN IN JAW [None]
  - PRIMARY SEQUESTRUM [None]
  - PURULENT DISCHARGE [None]
  - TOOTH EXTRACTION [None]
